FAERS Safety Report 13744965 (Version 2)
Quarter: 2017Q3

REPORT INFORMATION
  Report Type: Spontaneous
  Country: US (occurrence: US)
  Receive Date: 20170712
  Receipt Date: 20170816
  Transmission Date: 20171127
  Serious: Yes (Hospitalization)
  Sender: FDA-Public Use
  Company Number: US-PFIZER INC-2017298100

PATIENT
  Age: 60 Year
  Sex: Female

DRUGS (2)
  1. RAPAMUNE [Suspect]
     Active Substance: SIROLIMUS
     Indication: PROPHYLAXIS AGAINST GRAFT VERSUS HOST DISEASE
  2. RAPAMUNE [Suspect]
     Active Substance: SIROLIMUS
     Indication: LEUKAEMIA
     Dosage: UNK UNK (13), 1X/DAY

REACTIONS (2)
  - Full blood count decreased [Unknown]
  - Product use in unapproved indication [Unknown]
